FAERS Safety Report 8721095 (Version 2)
Quarter: 2012Q4

REPORT INFORMATION
  Report Type: Report from Study
  Country: DE (occurrence: DE)
  Receive Date: 20120813
  Receipt Date: 20121001
  Transmission Date: 20130627
  Serious: Yes (Death, Hospitalization, Other)
  Sender: FDA-Public Use
  Company Number: DE-EISAI INC-E7389-02847-SPO-DE

PATIENT
  Age: 67 Year
  Sex: Female

DRUGS (1)
  1. HALAVEN [Suspect]
     Indication: METASTATIC BREAST CANCER
     Route: 041
     Dates: start: 20111223

REACTIONS (4)
  - Ascites [Unknown]
  - Mucosal inflammation [Unknown]
  - Thrombosis [Not Recovered/Not Resolved]
  - General physical health deterioration [Recovered/Resolved]
